FAERS Safety Report 12191542 (Version 2)
Quarter: 2016Q2

REPORT INFORMATION
  Report Type: Spontaneous
  Country: RO (occurrence: RO)
  Receive Date: 20160318
  Receipt Date: 20160412
  Transmission Date: 20160815
  Serious: Yes (Hospitalization, Other)
  Sender: FDA-Public Use
  Company Number: RO-TEVA-644177ISR

PATIENT
  Age: 49 Year
  Sex: Male

DRUGS (1)
  1. METHOTREXATE [Suspect]
     Active Substance: METHOTREXATE
     Indication: PSORIASIS

REACTIONS (3)
  - Enterobacter pneumonia [Recovered/Resolved]
  - Dermatitis exfoliative [Recovered/Resolved]
  - Sepsis [Recovered/Resolved]
